FAERS Safety Report 24781338 (Version 2)
Quarter: 2025Q1

REPORT INFORMATION
  Report Type: Report from Study
  Country: CN (occurrence: CN)
  Receive Date: 20241227
  Receipt Date: 20250109
  Transmission Date: 20250408
  Serious: Yes (Other)
  Sender: GILEAD
  Company Number: CN-GILEAD-2024-0695403

PATIENT
  Age: 69 Year
  Sex: Female

DRUGS (15)
  1. SACITUZUMAB GOVITECAN-HZIY [Suspect]
     Active Substance: SACITUZUMAB GOVITECAN-HZIY
     Indication: Breast cancer
     Dosage: 540MG DAY 1, DAY 8, ONCE EVERY THREE WEEKS FOR  CHEMOTHERAPY [C1D1-C2D8]
     Route: 041
     Dates: start: 20231130, end: 20231228
  2. SACITUZUMAB GOVITECAN-HZIY [Suspect]
     Active Substance: SACITUZUMAB GOVITECAN-HZIY
     Dosage: C3-C9: 540MG ONCE EVERY THREE WEEKS
     Route: 041
     Dates: start: 20240122, end: 20240628
  3. SACITUZUMAB GOVITECAN-HZIY [Suspect]
     Active Substance: SACITUZUMAB GOVITECAN-HZIY
     Dosage: C3-C9: 540MG ONCE EVERY THREE WEEKS
     Route: 041
     Dates: start: 20240628
  4. SACITUZUMAB GOVITECAN-HZIY [Suspect]
     Active Substance: SACITUZUMAB GOVITECAN-HZIY
     Dosage: 360MG DAY 1, DAY 8
     Route: 041
     Dates: start: 20240829, end: 20241120
  5. SACITUZUMAB GOVITECAN-HZIY [Suspect]
     Active Substance: SACITUZUMAB GOVITECAN-HZIY
     Dosage: C5D1
     Route: 041
     Dates: start: 20241120
  6. SACITUZUMAB GOVITECAN-HZIY [Suspect]
     Active Substance: SACITUZUMAB GOVITECAN-HZIY
     Dosage: 360MG DAY 1, DAY 8
     Route: 041
     Dates: start: 20241128, end: 20241212
  7. SACITUZUMAB GOVITECAN-HZIY [Suspect]
     Active Substance: SACITUZUMAB GOVITECAN-HZIY
     Dosage: 360MG DAY 1, DAY 8,C6D8
     Route: 041
     Dates: start: 20241219
  8. SACITUZUMAB GOVITECAN-HZIY [Suspect]
     Active Substance: SACITUZUMAB GOVITECAN-HZIY
     Dosage: 540 MG, Q3WK,C3-C6
     Route: 041
     Dates: start: 20240122, end: 202403
  9. SACITUZUMAB GOVITECAN-HZIY [Suspect]
     Active Substance: SACITUZUMAB GOVITECAN-HZIY
     Dosage: 360 MG, Q3WK,C6D1
     Route: 041
     Dates: start: 20241212
  10. SACITUZUMAB GOVITECAN-HZIY [Suspect]
     Active Substance: SACITUZUMAB GOVITECAN-HZIY
     Dosage: 360 MG, Q3WK,D1D8
     Route: 041
     Dates: start: 20250101
  11. BEVACIZUMAB [Concomitant]
     Active Substance: BEVACIZUMAB
     Indication: Breast cancer
     Dosage: 0.4 G, D1 Q3WK
     Route: 041
     Dates: start: 20240829, end: 20241120
  12. BEVACIZUMAB [Concomitant]
     Active Substance: BEVACIZUMAB
     Dosage: 0.4 G, Q3WK
     Route: 041
     Dates: start: 20241120
  13. BEVACIZUMAB [Concomitant]
     Active Substance: BEVACIZUMAB
     Dosage: 0.4G D1, Q3WK
     Route: 041
     Dates: start: 20241128, end: 20241212
  14. BEVACIZUMAB [Concomitant]
     Active Substance: BEVACIZUMAB
     Dosage: 0.4G D1, Q3WK,C6D8
     Route: 041
     Dates: start: 20241219
  15. BEVACIZUMAB [Concomitant]
     Active Substance: BEVACIZUMAB
     Dosage: 0.4G D1, Q3WK,
     Route: 041
     Dates: start: 20250101

REACTIONS (4)
  - Metastases to lymph nodes [Unknown]
  - Metastases to bone [Unknown]
  - Neutrophil count decreased [Unknown]
  - Decreased appetite [Unknown]

NARRATIVE: CASE EVENT DATE: 20240101
